FAERS Safety Report 4614175-2 (Version None)
Quarter: 2005Q1

REPORT INFORMATION
  Report Type: 
  Country: None (occurrence: None)
  Receive Date: 20050316
  Receipt Date: 20050304
  Transmission Date: 20050727
  Serious: Yes (Hospitalization)
  Sender: FDA-Public Use
  Company Number: CIP05000532

PATIENT
  Age: 84 Year
  Sex: Male

DRUGS (10)
  1. BENET (RISEDRONATE SODIUM) TABLET, 2.5MG [Suspect]
     Indication: OSTEOPOROSIS
     Dosage: 2.5 MG, ONCE, ORAL
     Route: 048
     Dates: start: 20050118, end: 20050118
  2. PROCATEROL HCL [Concomitant]
  3. LIPOVAS ^BANYU^ (SIMVASTATIN) [Concomitant]
  4. CEREKINON (TRIMEBUTINE MALEATE) [Concomitant]
  5. AZUCURENIN S (SODIUM GUALENATE, LEVOGLUTAMIDE) [Concomitant]
  6. LAC B (LACTOBACILLUS BIFIDUS, LYOPHILIZED) [Concomitant]
  7. FLUTIDE (FLUTICASONE PROPIONATE) [Concomitant]
  8. VASOMET (TERAZOSIN HYDROCHLORIDE) [Concomitant]
  9. PREDNISONE [Concomitant]
  10. ERYTHROCIN [Concomitant]

REACTIONS (4)
  - BLOOD LACTATE DEHYDROGENASE INCREASED [None]
  - CHEST PAIN [None]
  - GASTRITIS [None]
  - SPINAL OSTEOARTHRITIS [None]
